FAERS Safety Report 17461442 (Version 6)
Quarter: 2025Q2

REPORT INFORMATION
  Report Type: Report from Study
  Country: US (occurrence: US)
  Receive Date: 20200226
  Receipt Date: 20250411
  Transmission Date: 20250716
  Serious: Yes (Other)
  Sender: TAKEDA
  Company Number: US-SHIRE-US202006946

PATIENT
  Age: 52 Year
  Sex: Female
  Weight: 72 kg

DRUGS (18)
  1. .ALPHA.1-PROTEINASE INHIBITOR HUMAN [Suspect]
     Active Substance: .ALPHA.1-PROTEINASE INHIBITOR HUMAN
     Indication: Alpha-1 antitrypsin deficiency
     Dosage: 60 MILLIGRAM/KILOGRAM, 1/WEEK
     Dates: start: 20160204
  2. .ALPHA.1-PROTEINASE INHIBITOR HUMAN [Suspect]
     Active Substance: .ALPHA.1-PROTEINASE INHIBITOR HUMAN
     Dosage: 60 MILLIGRAM/KILOGRAM, 1/WEEK
     Dates: start: 20161208
  3. .ALPHA.1-PROTEINASE INHIBITOR HUMAN [Suspect]
     Active Substance: .ALPHA.1-PROTEINASE INHIBITOR HUMAN
     Dosage: 60 MILLIGRAM/KILOGRAM, 1/WEEK
     Dates: start: 20200721
  4. .ALPHA.1-PROTEINASE INHIBITOR HUMAN [Suspect]
     Active Substance: .ALPHA.1-PROTEINASE INHIBITOR HUMAN
     Dosage: 60 MILLIGRAM/KILOGRAM, 1/WEEK
     Dates: start: 20210503
  5. DIPHENHYDRAMINE HYDROCHLORIDE [Concomitant]
     Active Substance: DIPHENHYDRAMINE HYDROCHLORIDE
  6. EPINEPHRINE [Concomitant]
     Active Substance: EPINEPHRINE
  7. SODIUM CHLORIDE [Concomitant]
     Active Substance: SODIUM CHLORIDE
  8. ADVIL [Concomitant]
     Active Substance: IBUPROFEN
  9. ALBUTEROL SULFATE [Concomitant]
     Active Substance: ALBUTEROL SULFATE
  10. VITAMIN C [Concomitant]
     Active Substance: ASCORBIC ACID
  11. MAGNESIUM [Concomitant]
     Active Substance: MAGNESIUM
  12. BENADRYL [Concomitant]
     Active Substance: DIPHENHYDRAMINE HYDROCHLORIDE
  13. VITAMIN D3 [Concomitant]
     Active Substance: CHOLECALCIFEROL
  14. DIPHENHYDRAMINE [Concomitant]
     Active Substance: DIPHENHYDRAMINE
  15. ASPIRIN [Concomitant]
     Active Substance: ASPIRIN
  16. ARNUITY ELLIPTA [Concomitant]
     Active Substance: FLUTICASONE FUROATE
  17. GUAIFENESIN AND DEXTROMETHORPHAN [Concomitant]
     Active Substance: DEXTROMETHORPHAN\GUAIFENESIN
  18. COLACE [Concomitant]
     Active Substance: DOCUSATE SODIUM

REACTIONS (18)
  - Uterine leiomyoma [Unknown]
  - Basal cell carcinoma [Unknown]
  - COVID-19 [Unknown]
  - Pain [Recovering/Resolving]
  - Pyrexia [Unknown]
  - Obstruction [Unknown]
  - Insurance issue [Unknown]
  - Procedural pain [Recovering/Resolving]
  - Animal bite [Unknown]
  - Oropharyngeal pain [Unknown]
  - Dysphonia [Unknown]
  - Product dose omission issue [Unknown]
  - Product use issue [Unknown]
  - Upper respiratory tract infection [Unknown]
  - Malaise [Unknown]
  - Cough [Unknown]
  - Arthralgia [Recovered/Resolved]
  - Myalgia [Unknown]

NARRATIVE: CASE EVENT DATE: 20250402
